FAERS Safety Report 13776957 (Version 3)
Quarter: 2017Q3

REPORT INFORMATION
  Report Type: Report from Study
  Country: US (occurrence: US)
  Receive Date: 20170720
  Receipt Date: 20170829
  Transmission Date: 20171127
  Serious: Yes (Hospitalization, Disabling, Other)
  Sender: FDA-Public Use
  Company Number: US-GILEAD-2017-0283474

PATIENT
  Age: 73 Year
  Sex: Female

DRUGS (1)
  1. RANOLAZINE. [Suspect]
     Active Substance: RANOLAZINE
     Indication: ANGINA PECTORIS
     Dosage: 1000 MG, UNK
     Route: 048

REACTIONS (16)
  - Malaise [Unknown]
  - Osteonecrosis [Unknown]
  - Impaired driving ability [Not Recovered/Not Resolved]
  - Memory impairment [Not Recovered/Not Resolved]
  - Back disorder [Unknown]
  - Confusional state [Not Recovered/Not Resolved]
  - Spinal disorder [Not Recovered/Not Resolved]
  - Knee arthroplasty [Unknown]
  - Blood glucose decreased [Unknown]
  - Rotator cuff syndrome [Unknown]
  - Gait disturbance [Not Recovered/Not Resolved]
  - Gait inability [Unknown]
  - Mobility decreased [Unknown]
  - Intervertebral disc disorder [Not Recovered/Not Resolved]
  - Procedural pain [Unknown]
  - Dysstasia [Unknown]

NARRATIVE: CASE EVENT DATE: 2017
